FAERS Safety Report 23191796 (Version 1)
Quarter: 2023Q4

REPORT INFORMATION
  Report Type: Spontaneous
  Country: US (occurrence: US)
  Receive Date: 20231116
  Receipt Date: 20231116
  Transmission Date: 20240109
  Serious: No
  Sender: FDA-Public Use
  Company Number: US-SANDOZ-SDZ2023US054272

PATIENT
  Sex: Female

DRUGS (3)
  1. ALBUTEROL SULFATE [Suspect]
     Active Substance: ALBUTEROL SULFATE
     Indication: Seasonal allergy
     Dosage: 1 PUFF, EVERY 6 HOURS (GIVE OR TAKE) (PUMPED IT 4 TIMES)
     Route: 065
     Dates: start: 20230411
  2. ALBUTEROL SULFATE [Suspect]
     Active Substance: ALBUTEROL SULFATE
     Indication: Nasopharyngitis
  3. ALBUTEROL SULFATE [Suspect]
     Active Substance: ALBUTEROL SULFATE
     Indication: Pollution

REACTIONS (5)
  - Insurance issue [Unknown]
  - Product dose omission issue [Unknown]
  - Off label use [Unknown]
  - Device leakage [Unknown]
  - Product use issue [Unknown]
